FAERS Safety Report 6988896-0 (Version None)
Quarter: 2010Q3

REPORT INFORMATION
  Report Type: 
  Country: None (occurrence: None)
  Receive Date: 20100916
  Receipt Date: 20090729
  Transmission Date: 20110219
  Serious: Yes (Hospitalization)
  Sender: FDA-Public Use
  Company Number: FR-PFIZER INC-2009247042

PATIENT
  Sex: Male

DRUGS (6)
  1. LYRICA [Suspect]
     Route: 048
  2. SIMVASTATIN [Suspect]
     Route: 048
  3. BYETTA [Suspect]
     Dosage: 10 MG, 2X/DAY
     Route: 058
     Dates: start: 20081101, end: 20090619
  4. GLUCOPHAGE [Suspect]
     Dosage: 1000 MG, 3X/DAY
     Route: 048
     Dates: end: 20090619
  5. INIPOMP [Suspect]
     Route: 048
  6. CARDENSIEL [Suspect]
     Route: 048

REACTIONS (1)
  - HEPATIC NEOPLASM MALIGNANT [None]
